FAERS Safety Report 5021115-3 (Version None)
Quarter: 2006Q2

REPORT INFORMATION
  Report Type: 
  Country: None (occurrence: None)
  Receive Date: 20060425
  Receipt Date: 20050303
  Transmission Date: 20061013
  Serious: No
  Sender: FDA-Public Use
  Company Number: WEAS 0503USA00525

PATIENT
  Age: 4 Year
  Sex: Male
  Weight: 20.4119 kg

DRUGS (3)
  1. SINGULAIR [Suspect]
     Indication: ASTHMA
     Dosage: 5 MG DAILY PO
     Route: 048
  2. FLOVENT [Concomitant]
  3. ALBUTEROL SPIROS [Concomitant]

REACTIONS (2)
  - ABNORMAL BEHAVIOUR [None]
  - SLEEP TERROR [None]
